FAERS Safety Report 13288198 (Version 1)
Quarter: 2017Q1

REPORT INFORMATION
  Report Type: Spontaneous
  Country: TR (occurrence: TR)
  Receive Date: 20170302
  Receipt Date: 20170302
  Transmission Date: 20170428
  Serious: Yes (Life-Threatening, Other)
  Sender: FDA-Public Use
  Company Number: TR-009507513-1702TUR012088

PATIENT
  Age: 47 Year
  Sex: Male
  Weight: 90 kg

DRUGS (2)
  1. MAXALT [Suspect]
     Active Substance: RIZATRIPTAN BENZOATE
     Indication: HEADACHE
  2. MAXALT [Suspect]
     Active Substance: RIZATRIPTAN BENZOATE
     Indication: MIGRAINE
     Dosage: 10 MG, UNK
     Route: 048
     Dates: start: 20170207, end: 201702

REACTIONS (3)
  - Respiratory distress [Recovering/Resolving]
  - Headache [Recovering/Resolving]
  - Tachycardia [Recovering/Resolving]

NARRATIVE: CASE EVENT DATE: 20170207
